FAERS Safety Report 16554814 (Version 1)
Quarter: 2019Q3

REPORT INFORMATION
  Report Type: Spontaneous
  Country: US (occurrence: US)
  Receive Date: 20190710
  Receipt Date: 20190710
  Transmission Date: 20191004
  Serious: No
  Sender: FDA-Public Use
  Company Number: US-AKRON, INC.-2070636

PATIENT
  Age: 54 Year
  Sex: Male

DRUGS (2)
  1. CLOBETASOL PROPIONATE CREAM [Suspect]
     Active Substance: CLOBETASOL PROPIONATE
     Indication: PSORIASIS
     Route: 061
  2. SILIQ [Concomitant]
     Active Substance: BRODALUMAB

REACTIONS (1)
  - Drug ineffective [Unknown]
